FAERS Safety Report 8485768-X (Version None)
Quarter: 2012Q3

REPORT INFORMATION
  Report Type: 
  Country: None (occurrence: None)
  Receive Date: 20120703
  Receipt Date: 20120624
  Transmission Date: 20120928
  Serious: Yes (Hospitalization)
  Sender: FDA-Public Use
  Company Number: US-ABBOTT-12P-163-0949802-00

PATIENT
  Age: 19 Year
  Sex: Male

DRUGS (2)
  1. HYDROCODONE BITARTRATE + ACETAMINOPHEN [Suspect]
     Indication: ORAL SURGERY
  2. HYDROCODONE BITARTRATE + ACETAMINOPHEN [Suspect]
     Indication: ORAL PAIN
     Dates: start: 20120606, end: 20120610

REACTIONS (11)
  - FEELING ABNORMAL [None]
  - INSOMNIA [None]
  - ACTIVITIES OF DAILY LIVING IMPAIRED [None]
  - APATHY [None]
  - ABNORMAL BEHAVIOUR [None]
  - SPEECH DISORDER [None]
  - LOGORRHOEA [None]
  - MANIA [None]
  - CONFUSIONAL STATE [None]
  - BIPOLAR DISORDER [None]
  - PARANOIA [None]
